FAERS Safety Report 8823875 (Version 2)
Quarter: 2012Q4

REPORT INFORMATION
  Report Type: 
  Country: JP (occurrence: JP)
  Receive Date: 20121003
  Receipt Date: 20121028
  Transmission Date: 20130627
  Serious: Yes (Hospitalization)
  Sender: FDA-Public Use
  Company Number: JP-009507513-1209JPN011654

PATIENT
  Age: 66 Year
  Sex: Male

DRUGS (6)
  1. PEGINTRON [Suspect]
     Indication: HEPATITIS C
     Dosage: 0.8 Microgram per kilogram, qw
     Route: 058
     Dates: start: 20120725, end: 20120913
  2. REBETOL [Suspect]
     Indication: HEPATITIS C
     Dosage: 400 mg, qd
     Route: 048
     Dates: start: 20120725, end: 20120913
  3. TELAVIC [Suspect]
     Indication: HEPATITIS C
     Dosage: 2250mg, qd
     Route: 048
     Dates: start: 20120725, end: 20120913
  4. KIPRES FINE GRANULES 4MG [Concomitant]
     Indication: ASTHMA
     Dosage: 10 mg, POR
     Route: 048
  5. FLUTIDE [Concomitant]
     Indication: ASTHMA
     Dosage: INH
     Route: 055
     Dates: end: 20120913
  6. FEBURIC [Concomitant]
     Indication: PROPHYLAXIS
     Dosage: 10 mg, UNK
     Route: 048
     Dates: end: 20120913

REACTIONS (1)
  - Pneumonia bacterial [Not Recovered/Not Resolved]
